FAERS Safety Report 4519630-1 (Version None)
Quarter: 2004Q4

REPORT INFORMATION
  Report Type: 
  Country: None (occurrence: None)
  Receive Date: 20041123
  Receipt Date: 20041110
  Transmission Date: 20050328
  Serious: No
  Sender: FDA-Public Use
  Company Number: CART-10175

PATIENT
  Age: 19 Year
  Sex: Female

DRUGS (1)
  1. CARTICEL [Suspect]
     Indication: OSTEOCHONDROSIS
     Dosage: 1 ONCE IS
     Dates: start: 19990216, end: 19990216

REACTIONS (9)
  - ADHESION [None]
  - ARTHROFIBROSIS [None]
  - CHONDROMALACIA [None]
  - CHONDROPATHY [None]
  - FAILURE OF IMPLANT [None]
  - GRAFT COMPLICATION [None]
  - INJURY [None]
  - JOINT DISLOCATION [None]
  - POST PROCEDURAL COMPLICATION [None]
